FAERS Safety Report 7814032-4 (Version None)
Quarter: 2011Q4

REPORT INFORMATION
  Report Type: 
  Country: None (occurrence: None)
  Receive Date: 20111012
  Receipt Date: 20111003
  Transmission Date: 20120403
  Serious: Yes (Other)
  Sender: FDA-Public Use
  Company Number: 201111301

PATIENT
  Sex: Male

DRUGS (9)
  1. LIORESAL [Suspect]
     Indication: MUSCLE SPASTICITY
  2. VALIUM [Concomitant]
  3. DEPAKOTE [Concomitant]
  4. ELAVIL [Concomitant]
  5. MULTI-VITAMIN [Concomitant]
  6. LASIX [Concomitant]
  7. NORCO [Concomitant]
  8. LEVOTHROID [Concomitant]
  9. ZESTRIL [Concomitant]

REACTIONS (6)
  - INFUSION SITE MASS [None]
  - PAIN IN EXTREMITY [None]
  - EXCESSIVE GRANULATION TISSUE [None]
  - IMPLANT SITE ABSCESS [None]
  - SPINAL CORD OEDEMA [None]
  - DERMAL CYST [None]
